FAERS Safety Report 6072343-X (Version None)
Quarter: 2009Q1

REPORT INFORMATION
  Report Type: 
  Country: None (occurrence: None)
  Receive Date: 20090210
  Receipt Date: 20090129
  Transmission Date: 20090719
  Serious: Yes (Other)
  Sender: FDA-Public Use
  Company Number: PHHY2008DE27698

PATIENT
  Sex: Male

DRUGS (6)
  1. DIOVAN [Suspect]
     Dosage: UNK
  2. RASILEZ [Suspect]
     Dosage: UNK
  3. INSIDON [Suspect]
     Dosage: UNK
  4. CLONIDIN-RATIOPHARM [Suspect]
     Dosage: UNK
  5. NORVASC [Suspect]
     Dosage: UNK
  6. TRANSTEC [Suspect]
     Dosage: UNK

REACTIONS (1)
  - HYPONATRAEMIA [None]
